FAERS Safety Report 7115899-8 (Version None)
Quarter: 2010Q4

REPORT INFORMATION
  Report Type: 
  Country: None (occurrence: None)
  Receive Date: 20101122
  Receipt Date: 20101105
  Transmission Date: 20110411
  Serious: Yes (Hospitalization)
  Sender: FDA-Public Use
  Company Number: DE-BAYER-201046820GPV

PATIENT
  Age: 67 Year
  Sex: Male

DRUGS (22)
  1. ASPIRIN [Suspect]
     Indication: CORONARY ARTERY DISEASE
     Route: 048
     Dates: start: 20090906
  2. ANGIOMAX [Suspect]
     Indication: PERCUTANEOUS CORONARY INTERVENTION
     Route: 042
     Dates: start: 20090906, end: 20090906
  3. ANGIOMAX [Suspect]
     Route: 042
     Dates: start: 20090906, end: 20090906
  4. ANGIOMAX [Suspect]
     Route: 042
     Dates: start: 20090906, end: 20090906
  5. CLOPIDOGREL [Suspect]
     Indication: CORONARY ARTERY DISEASE
     Dates: start: 20090906, end: 20090906
  6. CLOPIDOGREL [Suspect]
     Dates: start: 20090907
  7. ENOXAPARIN SODIUM [Suspect]
     Indication: ATRIAL FIBRILLATION
     Route: 058
     Dates: start: 20090908, end: 20090910
  8. ENOXAPARIN SODIUM [Suspect]
     Route: 058
     Dates: start: 20090910, end: 20090915
  9. DELIX [Concomitant]
     Dates: start: 20090906, end: 20090907
  10. RAMIPRIL [Concomitant]
     Dates: start: 20090907, end: 20090915
  11. SIMVASTATIN [Concomitant]
     Dates: start: 20090606
  12. DIGITOXIN [Concomitant]
     Dates: start: 20090910, end: 20090910
  13. EBRANTIL [Concomitant]
     Dates: start: 20090910, end: 20090910
  14. METOPROLOL TARTRATE [Concomitant]
     Dates: start: 20090906, end: 20090908
  15. EPLERENONE [Concomitant]
     Dates: start: 20090910
  16. AMIODARONE HCL [Concomitant]
     Dates: start: 20090910, end: 20090910
  17. BISOPROLOL FUMARATE [Concomitant]
     Dates: start: 20090908, end: 20090910
  18. MOXONIDIN [Concomitant]
     Dates: start: 20090908, end: 20090916
  19. LERCANIDIPINE [Concomitant]
     Dates: start: 20090908, end: 20090919
  20. TORASEMID [Concomitant]
     Dates: start: 20090907
  21. MIDAZOLAM HCL [Concomitant]
     Dates: start: 20090906, end: 20090906
  22. ETOMIDATE [Concomitant]
     Dates: start: 20090906, end: 20090906

REACTIONS (1)
  - VASCULAR PSEUDOANEURYSM [None]
